FAERS Safety Report 8925197 (Version 1)
Quarter: 2012Q4

REPORT INFORMATION
  Report Type: 
  Country: US (occurrence: US)
  Receive Date: 20121126
  Receipt Date: 20121126
  Transmission Date: 20130627
  Serious: Yes (Hospitalization, Other)
  Sender: FDA-Public Use
  Company Number: US-TEVA-361257USA

PATIENT
  Age: 33 Year
  Sex: Female
  Weight: 96.25 kg

DRUGS (3)
  1. PARAGARD 380A [Suspect]
     Indication: CONTRACEPTION
     Route: 015
     Dates: start: 20101031
  2. PRENATAL VITAMINS [Concomitant]
     Dosage: 1 Dosage forms Daily;
     Route: 048
     Dates: start: 20120507
  3. ZANTAC [Concomitant]
     Indication: DYSPEPSIA
     Route: 048
     Dates: start: 20120507

REACTIONS (5)
  - Pregnancy with contraceptive device [Unknown]
  - Drug ineffective [Unknown]
  - Device dislocation [Unknown]
  - Premature rupture of membranes [Unknown]
  - Cholelithiasis [Unknown]
